FAERS Safety Report 24103207 (Version 1)
Quarter: 2024Q3

REPORT INFORMATION
  Report Type: Spontaneous
  Country: AU (occurrence: AU)
  Receive Date: 20240717
  Receipt Date: 20240717
  Transmission Date: 20241017
  Serious: Yes (Other)
  Sender: SAMSUNG BIOEPIS
  Company Number: AU-SAMSUNG BIOEPIS-SB-2024-21049

PATIENT
  Age: 24 Year
  Sex: Male
  Weight: 76 kg

DRUGS (1)
  1. RENFLEXIS [Suspect]
     Active Substance: INFLIXIMAB-ABDA
     Indication: Crohn^s disease
     Route: 042

REACTIONS (5)
  - Crohn^s disease [Unknown]
  - Large intestinal ulcer [Unknown]
  - Large intestine polyp [Unknown]
  - Therapeutic response shortened [Unknown]
  - Off label use [Unknown]
